FAERS Safety Report 7717402-8 (Version None)
Quarter: 2011Q3

REPORT INFORMATION
  Report Type: 
  Country: None (occurrence: None)
  Receive Date: 20110830
  Receipt Date: 20110822
  Transmission Date: 20111222
  Serious: Yes (Other)
  Sender: FDA-Public Use
  Company Number: US-JNJFOC-20110811242

PATIENT
  Sex: Female

DRUGS (4)
  1. LEVAQUIN [Suspect]
     Indication: SINUSITIS
     Route: 042
     Dates: start: 20110101, end: 20110101
  2. LEVAQUIN [Suspect]
     Route: 042
     Dates: start: 20110101, end: 20110101
  3. LEVAQUIN [Suspect]
     Indication: DACRYOCANALICULITIS
     Route: 042
     Dates: start: 20110101, end: 20110101
  4. LEVAQUIN [Suspect]
     Route: 042
     Dates: start: 20110101, end: 20110101

REACTIONS (3)
  - DACRYOSTENOSIS ACQUIRED [None]
  - DACRYOCANALICULITIS [None]
  - ADVERSE EVENT [None]
